FAERS Safety Report 6700825-3 (Version None)
Quarter: 2010Q2

REPORT INFORMATION
  Report Type: 
  Country: None (occurrence: None)
  Receive Date: 20100428
  Receipt Date: 20100427
  Transmission Date: 20101027
  Serious: Yes (Other)
  Sender: FDA-Public Use
  Company Number: IT-ROXANE LABORATORIES, INC.-2010-RO-00469RO

PATIENT
  Age: 63 Year
  Sex: Female

DRUGS (7)
  1. AZATHIOPRINE [Suspect]
     Indication: CROHN'S DISEASE
     Dates: start: 19940101, end: 20081001
  2. ADALIMUMAB [Suspect]
     Indication: CROHN'S DISEASE
  3. ADALIMUMAB [Suspect]
  4. STEROIDS [Suspect]
     Indication: CROHN'S DISEASE
  5. GLEEVEC [Concomitant]
     Indication: ACUTE LYMPHOCYTIC LEUKAEMIA
     Dosage: 400 MG
  6. ANTIBIOTIC/MACROLYD [Concomitant]
     Indication: EVIDENCE BASED TREATMENT
  7. STEROIDS [Concomitant]
     Indication: ACUTE LYMPHOCYTIC LEUKAEMIA

REACTIONS (6)
  - ACUTE LYMPHOCYTIC LEUKAEMIA [None]
  - ASTHENIA [None]
  - CHEST PAIN [None]
  - DRUG INEFFECTIVE [None]
  - NAUSEA [None]
  - PRODUCTIVE COUGH [None]
